FAERS Safety Report 8375037-0 (Version None)
Quarter: 2012Q2

REPORT INFORMATION
  Report Type: 
  Country: None (occurrence: None)
  Receive Date: 20120521
  Receipt Date: 20120516
  Transmission Date: 20120825
  Serious: Yes (Hospitalization, Other)
  Sender: FDA-Public Use
  Company Number: US-ABBOTT-12P-163-0925545-00

PATIENT

DRUGS (1)
  1. HUMIRA [Suspect]
     Indication: MATERNAL EXPOSURE TIMING UNSPECIFIED
     Route: 064

REACTIONS (11)
  - ILEUS [None]
  - ROTAVIRUS INFECTION [None]
  - SMALL INTESTINAL OBSTRUCTION [None]
  - HAEMATOCHEZIA [None]
  - DIARRHOEA [None]
  - PYREXIA [None]
  - CLOSTRIDIAL INFECTION [None]
  - INTUSSUSCEPTION [None]
  - VOMITING [None]
  - GASTROENTERITIS [None]
  - FOETAL EXPOSURE DURING PREGNANCY [None]
